FAERS Safety Report 7459379-9 (Version None)
Quarter: 2011Q2

REPORT INFORMATION
  Report Type: 
  Country: None (occurrence: None)
  Receive Date: 20110504
  Receipt Date: 20110504
  Transmission Date: 20111010
  Serious: Yes (Life-Threatening, Hospitalization)
  Sender: FDA-Public Use
  Company Number: None

PATIENT
  Sex: Female
  Weight: 64.5 kg

DRUGS (1)
  1. DABIGATRAN 150MG BOEHRINGER INGELHEIM [Suspect]
     Indication: HIP SURGERY
     Dosage: 150MG BID PO
     Route: 048

REACTIONS (1)
  - POST PROCEDURAL HAEMORRHAGE [None]
